FAERS Safety Report 6924922-2 (Version None)
Quarter: 2010Q3

REPORT INFORMATION
  Report Type: 
  Country: None (occurrence: None)
  Receive Date: 20100816
  Receipt Date: 20100805
  Transmission Date: 20110219
  Serious: No
  Sender: FDA-Public Use
  Company Number: US-JNJFOC-20100802362

PATIENT
  Sex: Male
  Weight: 108.86 kg

DRUGS (1)
  1. FENTANYL CITRATE [Suspect]
     Indication: BACK PAIN
     Route: 062

REACTIONS (1)
  - WRONG TECHNIQUE IN DRUG USAGE PROCESS [None]
